FAERS Safety Report 4287492-6 (Version None)
Quarter: 2004Q1

REPORT INFORMATION
  Report Type: 
  Country: None (occurrence: None)
  Receive Date: 20040209
  Receipt Date: 20030709
  Transmission Date: 20041129
  Serious: No
  Sender: FDA-Public Use
  Company Number: US-GLAXOSMITHKLINE-A0416053A

PATIENT
  Age: 49 Year
  Sex: Female

DRUGS (2)
  1. PAXIL CR [Suspect]
     Indication: ANXIETY
     Dosage: 12.5MG PER DAY
     Route: 048
  2. ATIVAN [Concomitant]

REACTIONS (3)
  - CONSTIPATION [None]
  - DIARRHOEA [None]
  - URINARY HESITATION [None]
